FAERS Safety Report 14331929 (Version 1)
Quarter: 2017Q4

REPORT INFORMATION
  Report Type: Spontaneous
  Country: US (occurrence: US)
  Receive Date: 20171227
  Receipt Date: 20171227
  Transmission Date: 20180321
  Serious: No
  Sender: FDA-Public Use
  Company Number: None

PATIENT
  Age: 53 Year
  Sex: Female
  Weight: 74.39 kg

DRUGS (28)
  1. RESTASIS [Concomitant]
     Active Substance: CYCLOSPORINE
  2. CALCIUM [Concomitant]
     Active Substance: CALCIUM
  3. VIGINAL PROBIOTICS [Concomitant]
  4. TRAMADOL 50MG TABLETS [Suspect]
     Active Substance: TRAMADOL HYDROCHLORIDE
     Indication: ARTHRITIS
     Dosage: 50 MG, 180, 2/DAY, MOUTH
     Route: 048
     Dates: start: 20171110
  5. PREDNISONE. [Concomitant]
     Active Substance: PREDNISONE
  6. FISH OIL [Concomitant]
     Active Substance: FISH OIL
  7. FLUTICAZONE NASAL SPRAY [Concomitant]
  8. CLOTRIMAZOLE AND BETAMETHASONE DIPROPIONATE LOTION [Concomitant]
  9. VITAMIN C [Concomitant]
     Active Substance: ASCORBIC ACID
  10. DICLOFENAC SODIUM. [Concomitant]
     Active Substance: DICLOFENAC SODIUM
  11. COLCRYS [Concomitant]
     Active Substance: COLCHICINE
  12. BABY ASPIRIN [Concomitant]
     Active Substance: ASPIRIN
  13. METANX [Concomitant]
     Active Substance: LEVOMEFOLATE CALCIUM\METHYLCOBALAMIN\PYRIDOXAL PHOSPHATE ANHYDROUS
  14. CRANBERRY. [Concomitant]
     Active Substance: CRANBERRY
  15. CLARITIN [Concomitant]
     Active Substance: LORATADINE
  16. VALSARTAN. [Concomitant]
     Active Substance: VALSARTAN
  17. PEPTO BISMAL [Concomitant]
  18. VITAMIN D [Concomitant]
     Active Substance: CHOLECALCIFEROL
  19. OYSTANE LIQUID GEL EYE DROPS [Concomitant]
  20. LYRICA [Concomitant]
     Active Substance: PREGABALIN
  21. MONTELUKAST [Concomitant]
     Active Substance: MONTELUKAST SODIUM
  22. VALACYCLOVIR [Concomitant]
     Active Substance: VALACYCLOVIR HYDROCHLORIDE
  23. COQ10 [Concomitant]
     Active Substance: UBIDECARENONE
  24. IRON [Concomitant]
     Active Substance: IRON
  25. HYDROCORTISONE. [Suspect]
     Active Substance: HYDROCORTISONE
  26. METHOCARBAMOL. [Concomitant]
     Active Substance: METHOCARBAMOL
  27. IBUPROPHEN [Concomitant]
     Active Substance: IBUPROFEN
  28. VALCYCLOVIR OINTMENT [Concomitant]

REACTIONS (9)
  - Arthralgia [None]
  - Product substitution issue [None]
  - Abdominal pain upper [None]
  - Pain [None]
  - Musculoskeletal stiffness [None]
  - Scratch [None]
  - Pruritus [None]
  - Drug ineffective [None]
  - Somnolence [None]

NARRATIVE: CASE EVENT DATE: 201710
